FAERS Safety Report 6182877-5 (Version None)
Quarter: 2009Q2

REPORT INFORMATION
  Report Type: 
  Country: None (occurrence: None)
  Receive Date: 20090505
  Receipt Date: 20090424
  Transmission Date: 20091009
  Serious: Yes (Other)
  Sender: FDA-Public Use
  Company Number: GXKR2009HR05055

PATIENT
  Age: 52 Year
  Sex: Male

DRUGS (2)
  1. CIPROFLOXACIN [Suspect]
     Indication: URINARY TRACT INFECTION
  2. SIMVASTATIN [Suspect]
     Indication: DYSLIPIDAEMIA

REACTIONS (3)
  - BLOOD ALKALINE PHOSPHATASE INCREASED [None]
  - IMPAIRED HEALING [None]
  - TENDON RUPTURE [None]
